FAERS Safety Report 7054182-6 (Version None)
Quarter: 2010Q4

REPORT INFORMATION
  Report Type: 
  Country: None (occurrence: None)
  Receive Date: 20101020
  Receipt Date: 20101013
  Transmission Date: 20110411
  Serious: Yes (Hospitalization)
  Sender: FDA-Public Use
  Company Number: FR-PFIZER INC-2010130717

PATIENT
  Age: 81 Year
  Sex: Female

DRUGS (13)
  1. ATARAX [Suspect]
     Dosage: 25 MG, 1X/DAY
     Route: 048
     Dates: end: 20100713
  2. DEROXAT [Suspect]
     Indication: ANXIETY DISORDER
     Dosage: 20 MG, 1X/DAY
     Route: 048
     Dates: start: 20100501, end: 20100713
  3. ARICEPT [Suspect]
     Indication: DEMENTIA ALZHEIMER'S TYPE
     Dosage: 10 MG, 1X/DAY
     Route: 048
     Dates: start: 20050101, end: 20100713
  4. DIGOXIN [Suspect]
     Dosage: 0.25 MG, 1X/DAY
     Route: 048
     Dates: end: 20100715
  5. STILNOX [Suspect]
     Dosage: 10 MG, 1X/DAY
     Route: 048
     Dates: end: 20100713
  6. LEVOTHYROXINE SODIUM [Suspect]
     Dosage: 50 UG, 1X/DAY
     Route: 048
     Dates: end: 20100713
  7. ALFUZOSIN HCL [Concomitant]
  8. FUROSEMIDE [Concomitant]
     Dosage: 20 MG, UNK
  9. KARDEGIC [Concomitant]
     Dosage: 160 MG POWDER FOR SOLUTION
  10. CANDESARTAN CILEXETIL [Concomitant]
  11. URAPIDIL [Concomitant]
  12. SPASFON-LYOC [Concomitant]
  13. INOFER [Concomitant]

REACTIONS (7)
  - DEHYDRATION [None]
  - HYPERKALAEMIA [None]
  - HYPERTONIA [None]
  - SOMNOLENCE [None]
  - TREMOR [None]
  - URINARY RETENTION [None]
  - WALKING DISABILITY [None]
